FAERS Safety Report 14697279 (Version 1)
Quarter: 2018Q1

REPORT INFORMATION
  Report Type: Spontaneous
  Country: US (occurrence: US)
  Receive Date: 20180330
  Receipt Date: 20180330
  Transmission Date: 20180509
  Serious: No
  Sender: FDA-Public Use
  Company Number: US-SA-2017SA133865

PATIENT
  Age: 60 Year
  Sex: Female

DRUGS (1)
  1. ALLEGRA ALLERGY [Suspect]
     Active Substance: FEXOFENADINE HYDROCHLORIDE
     Indication: SEASONAL ALLERGY
     Dosage: FREQUENCY- ANCE A DAY WHEN NEEDED
     Route: 065
     Dates: start: 20170717, end: 20170719

REACTIONS (5)
  - Insomnia [Unknown]
  - Product use issue [Unknown]
  - Sensation of foreign body [Unknown]
  - Dysphagia [Unknown]
  - Headache [Unknown]

NARRATIVE: CASE EVENT DATE: 20170719
